FAERS Safety Report 4945302-5 (Version None)
Quarter: 2006Q1

REPORT INFORMATION
  Report Type: 
  Country: None (occurrence: None)
  Receive Date: 20060315
  Receipt Date: 20060315
  Transmission Date: 20060701
  Serious: Yes (Other)
  Sender: FDA-Public Use
  Company Number: None

PATIENT
  Age: 42 Year
  Sex: Male
  Weight: 52.1637 kg

DRUGS (10)
  1. DURAGESIC-100 [Suspect]
     Indication: BACK PAIN
     Dosage: 100 MCG PATCH
     Route: 062
     Dates: start: 20050101
  2. DURAGESIC-100 [Suspect]
     Indication: RADICULAR PAIN
     Dosage: 100 MCG PATCH
     Route: 062
     Dates: start: 20050101
  3. LORTAB [Concomitant]
  4. XANAX [Concomitant]
  5. SOMA [Concomitant]
  6. PHENERGAN HCL [Concomitant]
  7. TOPROL-XL [Concomitant]
  8. PROTONIX [Concomitant]
  9. ASPIRIN [Concomitant]
  10. VYTORIN [Concomitant]

REACTIONS (5)
  - DRUG INEFFECTIVE [None]
  - DRUG WITHDRAWAL SYNDROME [None]
  - HYPERTENSION [None]
  - PYREXIA [None]
  - THERAPEUTIC RESPONSE UNEXPECTED WITH DRUG SUBSTITUTION [None]
